FAERS Safety Report 6993925-4 (Version None)
Quarter: 2010Q3

REPORT INFORMATION
  Report Type: 
  Country: None (occurrence: None)
  Receive Date: 20100917
  Receipt Date: 20100524
  Transmission Date: 20110219
  Serious: No
  Sender: FDA-Public Use
  Company Number: US-ASTRAZENECA-2010SE23884

PATIENT
  Age: 580 Month
  Sex: Female
  Weight: 93.9 kg

DRUGS (9)
  1. SEROQUEL [Suspect]
     Indication: BIPOLAR I DISORDER
     Dosage: TABLET AND TABLET SR TAKEN INTERCHANGABLY
     Route: 048
     Dates: start: 20070101, end: 20100501
  2. SEROQUEL [Suspect]
     Dosage: TABLET AND TABLET SR TAKEN INTERCHANGABLY
     Route: 048
     Dates: start: 20100501
  3. LEVOTHYROXINE [Concomitant]
     Indication: THYROID DISORDER
     Route: 048
  4. JANUVIA [Concomitant]
  5. SIMVASTATIN [Concomitant]
  6. TRICOR [Concomitant]
  7. CYMBALTA [Concomitant]
  8. CLONAZEPAM [Concomitant]
  9. CARBAMAZEPINE [Concomitant]
     Dosage: AT NIGHT

REACTIONS (4)
  - DIARRHOEA [None]
  - HYPERGLYCAEMIA [None]
  - INSOMNIA [None]
  - INTENTIONAL DRUG MISUSE [None]
